FAERS Safety Report 5341100-1 (Version None)
Quarter: 2007Q2

REPORT INFORMATION
  Report Type: 
  Country: None (occurrence: None)
  Receive Date: 20070405
  Receipt Date: 20070103
  Transmission Date: 20071010
  Serious: No
  Sender: FDA-Public Use
  Company Number: US200601000921

PATIENT
  Age: 66 Year
  Sex: Female
  Weight: 60.8 kg

DRUGS (6)
  1. CYMBALTA [Suspect]
     Indication: ANXIETY
     Dosage: 30 MG, ORAL
     Route: 048
     Dates: start: 20061003, end: 20061004
  2. XANAX [Concomitant]
  3. COLDMED (CHLORPHENAMINE MALEATE, PARACETAMOL, PHENYLPROPANOLAMINE HYDR [Concomitant]
  4. IMITREX [Concomitant]
  5. FLONASE [Concomitant]
  6. ZANTAC 150 [Concomitant]

REACTIONS (12)
  - ANXIETY [None]
  - ASTHENIA [None]
  - DIARRHOEA [None]
  - DIZZINESS [None]
  - DRUG WITHDRAWAL SYNDROME [None]
  - HOT FLUSH [None]
  - INSOMNIA [None]
  - NAUSEA [None]
  - PALPITATIONS [None]
  - PARAESTHESIA [None]
  - SENSORY DISTURBANCE [None]
  - WEIGHT DECREASED [None]
